FAERS Safety Report 9798116 (Version 2)
Quarter: 2014Q1

REPORT INFORMATION
  Report Type: Spontaneous
  Country: US (occurrence: US)
  Receive Date: 20140106
  Receipt Date: 20140211
  Transmission Date: 20141002
  Serious: Yes (Other)
  Sender: FDA-Public Use
  Company Number: US-SA-2014SA000197

PATIENT
  Age: 35 Year
  Sex: Female
  Weight: 80.33 kg

DRUGS (3)
  1. HECTOROL [Suspect]
     Indication: PRODUCT USED FOR UNKNOWN INDICATION
     Dosage: STRENGTH: 4 MCG/2ML
     Route: 042
     Dates: start: 20131219, end: 20131219
  2. VENOFER [Concomitant]
     Indication: BLOOD IRON DECREASED
     Dates: start: 20131206, end: 20131221
  3. NORMAL SALINE [Concomitant]
     Dosage: BOLUS
     Dates: start: 20131219

REACTIONS (2)
  - Hypersensitivity [Recovered/Resolved]
  - Choking sensation [Recovered/Resolved]
